FAERS Safety Report 5778477-9 (Version None)
Quarter: 2008Q2

REPORT INFORMATION
  Report Type: 
  Country: None (occurrence: None)
  Receive Date: 20080617
  Receipt Date: 20080617
  Transmission Date: 20081010
  Serious: No
  Sender: FDA-Public Use
  Company Number: None

PATIENT
  Age: 57 Year
  Sex: Male
  Weight: 76 kg

DRUGS (1)
  1. VALPROIC ACID [Suspect]
     Dosage: 3000 MG DAILY PO
     Route: 048

REACTIONS (1)
  - PLATELET COUNT DECREASED [None]
